FAERS Safety Report 10312569 (Version 1)
Quarter: 2014Q3

REPORT INFORMATION
  Report Type: Spontaneous
  Country: US (occurrence: US)
  Receive Date: 20140718
  Receipt Date: 20140718
  Transmission Date: 20150326
  Serious: Yes (Hospitalization)
  Sender: FDA-Public Use
  Company Number: US-BRISTOL-MYERS SQUIBB COMPANY-21192125

PATIENT
  Age: 34 Year
  Sex: Male
  Weight: 79.36 kg

DRUGS (3)
  1. GABAPENTIN. [Concomitant]
     Active Substance: GABAPENTIN
  2. ABILIFY [Suspect]
     Active Substance: ARIPIPRAZOLE
     Indication: BIPOLAR I DISORDER
     Dosage: 15MG
  3. LITHIUM [Concomitant]
     Active Substance: LITHIUM CARBONATE

REACTIONS (2)
  - Mania [Unknown]
  - Anxiety [Unknown]

NARRATIVE: CASE EVENT DATE: 201312
